FAERS Safety Report 8409530-9 (Version None)
Quarter: 2012Q2

REPORT INFORMATION
  Report Type: 
  Country: None (occurrence: None)
  Receive Date: 20120531
  Receipt Date: 20120531
  Transmission Date: 20120825
  Serious: Yes (Hospitalization)
  Sender: FDA-Public Use
  Company Number: None

PATIENT
  Sex: Female
  Weight: 73.4827 kg

DRUGS (7)
  1. COUMADIN [Suspect]
     Indication: DEEP VEIN THROMBOSIS
     Dosage: 10 MG PO DAILY
     Route: 048
     Dates: start: 20110622, end: 20110728
  2. LOVENOX [Suspect]
     Indication: DEEP VEIN THROMBOSIS
     Dosage: 60 MG SC BID
     Route: 058
     Dates: start: 20110622, end: 20110728
  3. DEPAKOTE ER [Concomitant]
  4. LAMICTAL [Concomitant]
  5. VITAMIN D [Concomitant]
  6. FERROUS SUL TAB [Concomitant]
  7. ZANTAC [Concomitant]

REACTIONS (1)
  - HAEMOGLOBIN DECREASED [None]
